FAERS Safety Report 9915658 (Version 3)
Quarter: 2014Q1

REPORT INFORMATION
  Report Type: Report from Study
  Country: CA (occurrence: CA)
  Receive Date: 20140221
  Receipt Date: 20140301
  Transmission Date: 20141002
  Serious: Yes (Other)
  Sender: FDA-Public Use
  Company Number: CA-ROCHE-1226056

PATIENT
  Age: 45 Year
  Sex: Female
  Weight: 66 kg

DRUGS (10)
  1. RITUXAN [Suspect]
     Indication: RHEUMATOID ARTHRITIS
     Dosage: LAST DOSE PRIOR TO SENSITIVITY OF MEDICATION ON 08/NOV/2012?LAST DOSE PRIOR TO NEUROPATHY IN HANDS:
     Route: 042
     Dates: start: 20121025
  2. METHYLPREDNISOLONE [Suspect]
     Indication: PREMEDICATION
     Route: 042
     Dates: start: 20121025, end: 20121108
  3. METHYLPREDNISOLONE [Suspect]
     Route: 042
     Dates: start: 20130515
  4. TYLENOL [Concomitant]
     Route: 048
     Dates: start: 20121025
  5. BENADRYL (CANADA) [Concomitant]
     Route: 048
     Dates: start: 20121025
  6. SYNTHROID [Concomitant]
  7. METHOTREXATE [Concomitant]
     Route: 065
  8. FOLIC ACID [Concomitant]
  9. REACTINE (CANADA) [Concomitant]
  10. REMICADE [Concomitant]
     Route: 065
     Dates: end: 2012

REACTIONS (3)
  - Neuropathy peripheral [Recovering/Resolving]
  - Drug hypersensitivity [Unknown]
  - Psychomotor hyperactivity [Unknown]
